FAERS Safety Report 17105338 (Version 1)
Quarter: 2019Q4

REPORT INFORMATION
  Report Type: Spontaneous
  Country: PT (occurrence: PT)
  Receive Date: 20191203
  Receipt Date: 20191203
  Transmission Date: 20200122
  Serious: Yes (Other)
  Sender: FDA-Public Use
  Company Number: PT-MYLANLABS-2019M1117648

PATIENT
  Age: 70 Year
  Sex: Male

DRUGS (1)
  1. ALLOPURINOL. [Suspect]
     Active Substance: ALLOPURINOL
     Indication: PRODUCT USED FOR UNKNOWN INDICATION
     Dosage: UNK

REACTIONS (10)
  - Necrosis [Unknown]
  - Chronic kidney disease [Unknown]
  - Thrombocytopenia [Unknown]
  - Rhabdomyolysis [Unknown]
  - Septic shock [Unknown]
  - Anaemia [Unknown]
  - Cardiac arrest [Unknown]
  - Enterococcal infection [Unknown]
  - Ischaemia [Unknown]
  - Stevens-Johnson syndrome [Unknown]
